FAERS Safety Report 9356446 (Version 1)
Quarter: 2013Q2

REPORT INFORMATION
  Report Type: Spontaneous
  Country: BR (occurrence: BR)
  Receive Date: 20130619
  Receipt Date: 20130619
  Transmission Date: 20140414
  Serious: Yes (Other)
  Sender: FDA-Public Use
  Company Number: BR-MERCK-1306BRA008371

PATIENT
  Age: 30 Year
  Sex: Female
  Weight: 82 kg

DRUGS (2)
  1. MICRODIOL [Suspect]
     Indication: CONTRACEPTION
     Dosage: UNK
     Route: 048
     Dates: start: 2007, end: 201305
  2. MICRODIOL [Suspect]
     Dosage: UNK
     Dates: end: 20130616

REACTIONS (3)
  - Abdominoplasty [Unknown]
  - Mammoplasty [Unknown]
  - Abnormal withdrawal bleeding [Not Recovered/Not Resolved]
